FAERS Safety Report 22068111 (Version 1)
Quarter: 2023Q1

REPORT INFORMATION
  Report Type: Spontaneous
  Country: GB (occurrence: None)
  Receive Date: 20230307
  Receipt Date: 20230307
  Transmission Date: 20230418
  Serious: Yes (Hospitalization)
  Sender: FDA-Public Use
  Company Number: 2023A052099

PATIENT
  Age: 82 Year
  Sex: Male

DRUGS (18)
  1. DAPAGLIFLOZIN [Suspect]
     Active Substance: DAPAGLIFLOZIN
     Dosage: 10MG OM
     Route: 048
  2. NITROGLYCERIN [Concomitant]
     Active Substance: NITROGLYCERIN
     Dosage: 400MICROGRAMS/DOSE PUMP SUBLINGUAL SPRAY 2 PRN
  3. ALPHAGAN P [Concomitant]
     Active Substance: BRIMONIDINE TARTRATE
     Dosage: 0.2% EYE DROPS ONE DROP TO BE USED TWICE A DAY
  4. CARBOCYSTEINE [Concomitant]
     Active Substance: CARBOCYSTEINE
     Dosage: 375MG CAPSULES TWO TO BE TAKEN THREE TIMES A DAY
  5. DIGOXIN [Concomitant]
     Active Substance: DIGOXIN
     Dosage: 125MICROGRAM TABLETS ONE TO BE TAKEN EACH DAY IN THE MORNING
  6. EDOXABAN [Concomitant]
     Active Substance: EDOXABAN
     Dosage: 60MG TABLETS ONE TO BE TAKEN EACH DAY
  7. LUMIGAN [Concomitant]
     Active Substance: BIMATOPROST
     Dosage: 300MICROGRAMS/ML EYE DROPS 0.4ML UNIT DOSE ONE DROP TO BE USED IN THE AFFECTED EYE(S) ONCE DAILY ...
  8. METFORMIN [Concomitant]
     Active Substance: METFORMIN HYDROCHLORIDE
     Dosage: 500MG TABLETS ONE TO BE TAKEN AT TEA-TIME
  9. RAMIPRIL [Concomitant]
     Active Substance: RAMIPRIL
     Dosage: 2.5MG CAPSULES `ONE TO BE TAKEN TWICE A DAY
  10. AZITHROMYCIN [Concomitant]
     Active Substance: AZITHROMYCIN
     Dosage: 250MG TABLETS ONE TO BE TAKEN MONDAY, WEDNESDAY AND FRIDAY
  11. BISOPROLOL [Concomitant]
     Active Substance: BISOPROLOL
     Dosage: 2.5MG TABLETS ONE TO BE TAKEN TWICE A DAY
  12. SPIRONOLACTONE [Concomitant]
     Active Substance: SPIRONOLACTONE
     Dosage: 25MG TABLETS ONE TO BE TAKEN IN THE MORNING
  13. BECLOMETHASONE DIPROPIONATE\FORMOTEROL FUMARATE\GLYCOPYRROLATE [Concomitant]
     Active Substance: BECLOMETHASONE DIPROPIONATE\FORMOTEROL FUMARATE\GLYCOPYRROLATE
     Dosage: 87MICROGRAMS/DOSE / 5MICROGRAMS/DOSE / 9MICROGRAMS/DOSE INHALER TWO PUFFS TO BE INHALED TWICE A DAY
  14. TAMSULOSIN [Concomitant]
     Active Substance: TAMSULOSIN
     Dosage: 400MICROGRAM MODIFIED-RELEASE CAPSULES ONE TO BE TAKEN EACH MORNING
  15. BUMETANIDE [Concomitant]
     Active Substance: BUMETANIDE
     Dosage: 1MG TABLETS TWO TABLETS TO BE TAKEN EACH MORNING --ONLY TAKES 1MG OD
  16. POLYETHYLENE GLYCOLS [Concomitant]
     Active Substance: POLYETHYLENE GLYCOLS
     Dosage: 1 BD VENTOLIN 100MICROGRAMS/DOSE
  17. SENNA [Concomitant]
     Active Substance: SENNA LEAF\SENNOSIDES\SENNOSIDES A AND B
     Dosage: 7.5MG TABLETS TWO TO BE TAKEN AT NIGHT
  18. DORZOLAMIDE [Concomitant]
     Active Substance: DORZOLAMIDE
     Dosage: 20MG/ML EYE DROPS ONE DROP TO BE USED TWICE A DAY IN THE LEFT EYE 10 ML

REACTIONS (1)
  - Orchitis [Recovered/Resolved]
